FAERS Safety Report 10991451 (Version 2)
Quarter: 2015Q2

REPORT INFORMATION
  Report Type: Report from Study
  Country: JP (occurrence: JP)
  Receive Date: 20150406
  Receipt Date: 20150430
  Transmission Date: 20150821
  Serious: Yes (Death, Life-Threatening)
  Sender: FDA-Public Use
  Company Number: JP-ASTRAZENECA-2015SE31775

PATIENT
  Age: 31018 Day
  Sex: Male

DRUGS (6)
  1. VFEND [Concomitant]
     Active Substance: VORICONAZOLE
     Dates: start: 20140820, end: 20140820
  2. VANCOMYCIN HYDROCHLORIDE. [Suspect]
     Active Substance: VANCOMYCIN HYDROCHLORIDE
     Dates: start: 20140809, end: 20140820
  3. DEXART [Concomitant]
     Active Substance: DEXAMETHASONE SODIUM PHOSPHATE
     Dates: start: 20140809, end: 20140811
  4. OZAGREL SODIUM [Concomitant]
     Dates: start: 20140811, end: 20140820
  5. MEROPENEM. [Suspect]
     Active Substance: MEROPENEM
     Indication: MENINGITIS BACTERIAL
     Route: 042
     Dates: start: 20140809, end: 20140820
  6. AMBISOME [Suspect]
     Active Substance: AMPHOTERICIN B
     Dates: start: 20140809, end: 20140820

REACTIONS (2)
  - Blood alkaline phosphatase increased [Not Recovered/Not Resolved]
  - Subarachnoid haemorrhage [Fatal]

NARRATIVE: CASE EVENT DATE: 20140818
